FAERS Safety Report 5704397-1 (Version None)
Quarter: 2008Q2

REPORT INFORMATION
  Report Type: 
  Country: None (occurrence: None)
  Receive Date: 20080414
  Receipt Date: 20080409
  Transmission Date: 20081010
  Serious: Yes (Life-Threatening, Hospitalization)
  Sender: FDA-Public Use
  Company Number: B0490709A

PATIENT
  Age: 82 Year
  Sex: Female

DRUGS (11)
  1. ARTIST [Suspect]
     Indication: ANGINA PECTORIS
     Dosage: 10MG PER DAY
     Route: 048
     Dates: start: 20070904, end: 20070910
  2. LOSARTAN POTASSIUM [Suspect]
     Indication: HYPERTENSION
     Route: 048
     Dates: start: 20060601, end: 20070910
  3. MUCODYNE [Concomitant]
     Dates: start: 20060601, end: 20070910
  4. CYANOCOBALAMIN [Concomitant]
     Dates: start: 20060601, end: 20070910
  5. MUCOSOLVAN [Concomitant]
     Dates: start: 20060601, end: 20070910
  6. JUVELA NICOTINATE [Concomitant]
     Dates: start: 20060601, end: 20070910
  7. GASTER D [Concomitant]
     Dates: start: 20060601, end: 20070910
  8. SEREVENT [Concomitant]
     Dates: start: 20060601, end: 20070910
  9. SIGMART [Concomitant]
     Dates: start: 20070903, end: 20070910
  10. ASPIRIN [Concomitant]
     Dates: start: 20070903, end: 20070910
  11. SPIRIVA [Concomitant]
     Dates: start: 20060601, end: 20070910

REACTIONS (7)
  - BLOOD PRESSURE INCREASED [None]
  - BLOOD SODIUM DECREASED [None]
  - DEPRESSED LEVEL OF CONSCIOUSNESS [None]
  - FALL [None]
  - HYPONATRAEMIA [None]
  - INAPPROPRIATE ANTIDIURETIC HORMONE SECRETION [None]
  - MUSCLE RIGIDITY [None]
